FAERS Safety Report 8597351-6 (Version None)
Quarter: 2012Q3

REPORT INFORMATION
  Report Type: 
  Country: None (occurrence: None)
  Receive Date: 20120816
  Receipt Date: 20120814
  Transmission Date: 20120928
  Serious: No
  Sender: FDA-Public Use
  Company Number: US-PFIZER INC-2012181921

PATIENT
  Age: 67 Year
  Sex: Male
  Weight: 61.678 kg

DRUGS (4)
  1. ASPIRIN [Concomitant]
     Indication: POSTOPERATIVE CARE
     Dosage: UNK
     Dates: start: 20020101
  2. TYLENOL [Concomitant]
     Indication: BACK PAIN
     Dosage: UNK, AS NEEDED
  3. CHANTIX [Suspect]
     Indication: SMOKING CESSATION THERAPY
     Dosage: 0.5 MG, 1X/DAY
     Route: 048
     Dates: start: 20120201, end: 20120601
  4. CHANTIX [Suspect]
     Dosage: UNK
     Route: 048
     Dates: start: 20120101, end: 20120101

REACTIONS (1)
  - EMOTIONAL DISORDER [None]
